FAERS Safety Report 6289155-4 (Version None)
Quarter: 2009Q3

REPORT INFORMATION
  Report Type: 
  Country: None (occurrence: None)
  Receive Date: 20090728
  Receipt Date: 20090620
  Transmission Date: 20100115
  Serious: Yes (Hospitalization, Other)
  Sender: FDA-Public Use
  Company Number: 2005EU000938

PATIENT
  Age: 42 Year
  Sex: Male

DRUGS (18)
  1. TACROLIMUS [Suspect]
     Indication: RENAL TRANSPLANT
     Dosage: 7.5 MG, UID/QD, ORAL
     Route: 048
     Dates: start: 20040516, end: 20050614
  2. DACLIZUMAB(DACLIZUMAB) [Suspect]
     Indication: RENAL TRANSPLANT
     Dosage: 150 MG, IV NOS; 75 MG, CYCLIC,
     Route: 042
     Dates: start: 20040517, end: 20040517
  3. DACLIZUMAB(DACLIZUMAB) [Suspect]
     Indication: RENAL TRANSPLANT
     Dosage: 150 MG, IV NOS; 75 MG, CYCLIC,
     Route: 042
     Dates: start: 20040602, end: 20040712
  4. MYCOPHENOLATE MOFETIL [Suspect]
     Indication: RENAL TRANSPLANT
     Dosage: 1 G, BID, ORAL; 500 MG, BID,; 1 G, BID,
     Route: 048
     Dates: start: 20040517, end: 20050410
  5. MYCOPHENOLATE MOFETIL [Suspect]
     Indication: RENAL TRANSPLANT
     Dosage: 1 G, BID, ORAL; 500 MG, BID,; 1 G, BID,
     Route: 048
     Dates: start: 20050411, end: 20050516
  6. MYCOPHENOLATE MOFETIL [Suspect]
     Indication: RENAL TRANSPLANT
     Dosage: 1 G, BID, ORAL; 500 MG, BID,; 1 G, BID,
     Route: 048
     Dates: start: 20050517
  7. PREDNISOLONE [Suspect]
     Indication: RENAL TRANSPLANT
     Dosage: 250 MG, TID, IV NOS; 75 MG, ORAL; 50 MG, BID, ORAL
     Dates: start: 20040517, end: 20040517
  8. PREDNISOLONE [Suspect]
     Indication: RENAL TRANSPLANT
     Dosage: 250 MG, TID, IV NOS; 75 MG, ORAL; 50 MG, BID, ORAL
     Dates: start: 20040518, end: 20040518
  9. PREDNISOLONE [Suspect]
     Indication: RENAL TRANSPLANT
     Dosage: 250 MG, TID, IV NOS; 75 MG, ORAL; 50 MG, BID, ORAL
     Dates: start: 20040519
  10. SIROLIMUS(SIROLIMUS) [Suspect]
     Dosage: 6 MG, UID/QD, ORAL; 2 MG, UID/QD, ORAL
     Route: 048
     Dates: start: 20050606, end: 20050606
  11. SIROLIMUS(SIROLIMUS) [Suspect]
     Dosage: 6 MG, UID/QD, ORAL; 2 MG, UID/QD, ORAL
     Route: 048
     Dates: start: 20050607, end: 20050607
  12. RAMIPRIL [Concomitant]
  13. METOPROLOL SUCCINATE [Concomitant]
  14. AMLODIPINE [Concomitant]
  15. VIGANTOLETTEN (COLECALCIFEROL) [Concomitant]
  16. FLUVASTATIN SODIUM [Concomitant]
  17. SULFAMETHOXAZOLE AND TRIMETHOPRIM [Concomitant]
  18. AMPICILLIN AND SULBACTAM [Concomitant]

REACTIONS (3)
  - MALIGNANT NEOPLASM PROGRESSION [None]
  - PYELONEPHRITIS ACUTE [None]
  - RENAL CELL CARCINOMA [None]
